FAERS Safety Report 8339485-7 (Version None)
Quarter: 2012Q2

REPORT INFORMATION
  Report Type: 
  Country: None (occurrence: None)
  Receive Date: 20120507
  Receipt Date: 20120427
  Transmission Date: 20120825
  Serious: Yes (Hospitalization)
  Sender: FDA-Public Use
  Company Number: PHHY2012JP022465

PATIENT
  Sex: Female

DRUGS (6)
  1. PARATHYROID HORMONES [Concomitant]
     Route: 048
  2. ZOLPIDEM [Concomitant]
     Route: 048
  3. RITALIN [Suspect]
     Indication: NARCOLEPSY
     Dosage: 20 MG, ONE TABLET DAILY
     Route: 048
     Dates: end: 20120101
  4. RITALIN [Suspect]
     Dosage: 10 MG, ONE TABLET DAILY
     Dates: start: 20120101, end: 20120216
  5. NEO-MERCAZOLE TAB [Concomitant]
     Indication: HYPERTHYROIDISM
  6. THYROID TAB [Concomitant]
     Route: 048

REACTIONS (2)
  - FALL [None]
  - MEMORY IMPAIRMENT [None]
